FAERS Safety Report 9211065 (Version 1)
Quarter: 2013Q2

REPORT INFORMATION
  Report Type: Other
  Country: GB (occurrence: GB)
  Receive Date: 20130404
  Receipt Date: 20130404
  Transmission Date: 20140414
  Serious: Yes (Hospitalization)
  Sender: FDA-Public Use
  Company Number: GB-ACTAVIS-2013-06019

PATIENT
  Age: 62 Year
  Sex: Male

DRUGS (4)
  1. IBUPROFEN (UNKNOWN) [Suspect]
     Indication: HIP ARTHROPLASTY
     Route: 048
  2. ASPIRIN [Suspect]
     Indication: HIP ARTHROPLASTY
     Dosage: 150 MG, DAILY
     Route: 048
     Dates: end: 20060206
  3. BENDROFLUAZIDE [Concomitant]
     Indication: HYPERTENSION
     Dosage: 2.5 MG, DAILY
     Route: 065
  4. ATENOLOL [Concomitant]
     Indication: HYPERTENSION
     Dosage: 50 MG, DAILY
     Route: 065

REACTIONS (2)
  - Gastrointestinal haemorrhage [Unknown]
  - Erosive duodenitis [Unknown]
